FAERS Safety Report 11094163 (Version 1)
Quarter: 2015Q2

REPORT INFORMATION
  Report Type: Spontaneous
  Country: CN (occurrence: CN)
  Receive Date: 20150506
  Receipt Date: 20150506
  Transmission Date: 20150821
  Serious: Yes (Hospitalization)
  Sender: FDA-Public Use
  Company Number: CN-GLAXOSMITHKLINE-CN2015GSK058514

PATIENT
  Age: 66 Year
  Sex: Male
  Weight: 75 kg

DRUGS (2)
  1. SERETIDE [Suspect]
     Active Substance: FLUTICASONE FUROATE\SALMETEROL XINAFOATE
     Indication: ASTHMA
     Dosage: 1 PUFF(S), BID
     Route: 055
     Dates: start: 2010
  2. SERETIDE [Suspect]
     Active Substance: FLUTICASONE FUROATE\SALMETEROL XINAFOATE
     Dosage: 1 PUFF(S), QD
     Dates: start: 2012

REACTIONS (7)
  - Cough [Recovered/Resolved]
  - Sputum discoloured [Recovered/Resolved]
  - Medication error [Recovered/Resolved]
  - Nasopharyngitis [Recovered/Resolved]
  - Mouth cyst [Unknown]
  - Oral mucosal blistering [Not Recovered/Not Resolved]
  - Lichen planus [Unknown]

NARRATIVE: CASE EVENT DATE: 2012
